FAERS Safety Report 8029603-2 (Version None)
Quarter: 2012Q1

REPORT INFORMATION
  Report Type: 
  Country: None (occurrence: None)
  Receive Date: 20120109
  Receipt Date: 20120103
  Transmission Date: 20120608
  Serious: Yes (Other)
  Sender: FDA-Public Use
  Company Number: US-PFIZER INC-2011278772

PATIENT
  Sex: Female
  Weight: 68 kg

DRUGS (8)
  1. METOPROLOL TARTRATE [Concomitant]
     Dosage: 50 MG, (1 IN MORNING, 1/2 IN EVENING) 1
  2. METOPROLOL TARTRATE [Concomitant]
     Dosage: 25 MG, 2X/DAY
     Route: 048
     Dates: start: 20111102
  3. PRASUGREL [Concomitant]
     Dosage: 10 MG, 1X/DAY
     Route: 048
     Dates: start: 20111102
  4. CRESTOR [Concomitant]
     Dosage: 10 MG, 1X/DAY
     Route: 048
  5. LIPITOR [Suspect]
     Indication: HYPERCHOLESTEROLAEMIA
     Dosage: 80 MG, 1X/DAY
     Route: 048
     Dates: start: 20111102, end: 20111215
  6. ACETYLSALICYLIC ACID [Concomitant]
     Dosage: 325 MG, 1X/DAY
     Route: 048
     Dates: start: 20111102
  7. WELLBUTRIN [Concomitant]
     Indication: SMOKING CESSATION THERAPY
     Dosage: 150 MG, 2X/DAY
     Route: 048
     Dates: end: 20111215
  8. RAMIPRIL [Concomitant]
     Dosage: 2.5 MG, 1X/DAY
     Route: 048
     Dates: start: 20111102

REACTIONS (9)
  - HEPATITIS [None]
  - BLOOD CHOLESTEROL INCREASED [None]
  - PYREXIA [None]
  - FATIGUE [None]
  - MYALGIA [None]
  - LOW DENSITY LIPOPROTEIN INCREASED [None]
  - INFLUENZA LIKE ILLNESS [None]
  - CHEST PAIN [None]
  - CHILLS [None]
